FAERS Safety Report 4364075-0 (Version None)
Quarter: 2004Q2

REPORT INFORMATION
  Report Type: 
  Country: None (occurrence: None)
  Receive Date: 20040519
  Receipt Date: 20040510
  Transmission Date: 20050107
  Serious: Yes (Hospitalization)
  Sender: FDA-Public Use
  Company Number: 2004-BP-02817RO

PATIENT
  Age: 83 Year
  Sex: Male

DRUGS (4)
  1. LEUCOVORIN CALCIUM [Suspect]
     Indication: GASTRIC CANCER
     Dosage: 90 MG  CYCLE  7 , PO
     Route: 048
     Dates: start: 20040311, end: 20040311
  2. TAXOL [Suspect]
     Indication: GASTRIC CANCER
     Dosage: SEE IMAGE
     Route: 042
     Dates: start: 20040318, end: 20040318
  3. TAXOL [Suspect]
     Indication: GASTRIC CANCER
     Dosage: SEE IMAGE
     Route: 042
     Dates: start: 20040415, end: 20040415
  4. UFG (TEGAFUR URACIL) [Suspect]
     Indication: GASTRIC ULCER
     Dosage: 400 MG -CYCLE 7,  PO
     Route: 048
     Dates: start: 20040311, end: 20040311

REACTIONS (2)
  - FEBRILE NEUTROPENIA [None]
  - INTESTINAL OBSTRUCTION [None]
